FAERS Safety Report 6823469-1 (Version None)
Quarter: 2010Q3

REPORT INFORMATION
  Report Type: 
  Country: None (occurrence: None)
  Receive Date: 20100708
  Receipt Date: 20100701
  Transmission Date: 20110219
  Serious: Yes (Other)
  Sender: FDA-Public Use
  Company Number: PHHO2010BO10004

PATIENT
  Sex: Male

DRUGS (1)
  1. TASIGNA [Suspect]
     Dosage: UNK
     Route: 048
     Dates: start: 20090901, end: 20100601

REACTIONS (6)
  - ANAEMIA [None]
  - GASTROINTESTINAL MOTILITY DISORDER [None]
  - LEUKOCYTOSIS [None]
  - PAIN [None]
  - SPLENECTOMY [None]
  - SPLENOMEGALY [None]
